FAERS Safety Report 8295750-3 (Version None)
Quarter: 2012Q2

REPORT INFORMATION
  Report Type: 
  Country: None (occurrence: None)
  Receive Date: 20120418
  Receipt Date: 20120416
  Transmission Date: 20120825
  Serious: No
  Sender: FDA-Public Use
  Company Number: US-PFIZER INC-2012094251

PATIENT
  Sex: Female
  Weight: 63.492 kg

DRUGS (2)
  1. IBUPROFEN (ADVIL) [Suspect]
     Indication: BACK PAIN
     Dosage: 600 MG, DAILY
     Route: 048
  2. LEVOTHYROXINE [Concomitant]
     Indication: THYROID DISORDER
     Dosage: 50 UG, DAILY

REACTIONS (1)
  - BLOOD CHOLESTEROL INCREASED [None]
